FAERS Safety Report 9486830 (Version 1)
Quarter: 2013Q3

REPORT INFORMATION
  Report Type: Spontaneous
  Country: US (occurrence: None)
  Receive Date: 20130827
  Receipt Date: 20130827
  Transmission Date: 20140515
  Serious: Yes (Other)
  Sender: FDA-Public Use
  Company Number: 163-207854-13081709

PATIENT
  Age: 50 Year
  Sex: Female

DRUGS (1)
  1. THALOMID [Suspect]
     Indication: PLASMA CELL MYELOMA
     Dosage: 2 IN 1 D
     Route: 048
     Dates: start: 201103

REACTIONS (3)
  - Human chorionic gonadotropin increased [None]
  - Rash erythematous [None]
  - Pruritus generalised [None]
